FAERS Safety Report 9487159 (Version 1)
Quarter: 2013Q3

REPORT INFORMATION
  Report Type: Spontaneous
  Country: CN (occurrence: CN)
  Receive Date: 20130829
  Receipt Date: 20130829
  Transmission Date: 20140515
  Serious: Yes (Other)
  Sender: FDA-Public Use
  Company Number: CN-BRISTOL-MYERS SQUIBB COMPANY-19208933

PATIENT
  Age: 47 Year
  Sex: Female
  Weight: 80.5 kg

DRUGS (1)
  1. CARBOPLATIN [Suspect]
     Indication: NEOPLASM
     Dosage: 1DF:CARBOPLATIN 300MG DISSOLVED IN 5%GS 500ML
     Route: 042
     Dates: start: 20120301, end: 20120301

REACTIONS (1)
  - Cardiac fibrillation [Recovering/Resolving]
